FAERS Safety Report 21858092 (Version 1)
Quarter: 2023Q1

REPORT INFORMATION
  Report Type: Report from Study
  Country: US (occurrence: US)
  Receive Date: 20230113
  Receipt Date: 20230113
  Transmission Date: 20230418
  Serious: No
  Sender: FDA-Public Use
  Company Number: US-ABBVIE-4231500

PATIENT
  Age: 25 Year
  Sex: Female

DRUGS (2)
  1. RINVOQ [Suspect]
     Active Substance: UPADACITINIB
     Indication: Product used for unknown indication
     Route: 048
     Dates: start: 202210
  2. Janssen covid 19 [Concomitant]
     Indication: COVID-19 immunisation
     Dosage: ONE IN ONCE; FIRST DOSE
     Route: 030
     Dates: start: 20201228, end: 20201228

REACTIONS (1)
  - Tonsillitis [Recovering/Resolving]

NARRATIVE: CASE EVENT DATE: 20221001
